FAERS Safety Report 9735351 (Version 2)
Quarter: 2013Q4

REPORT INFORMATION
  Report Type: Spontaneous
  Country: DK (occurrence: None)
  Receive Date: 20131204
  Receipt Date: 20131213
  Transmission Date: 20140711
  Serious: Yes (Death)
  Sender: FDA-Public Use
  Company Number: 2039854

PATIENT
  Sex: Male

DRUGS (7)
  1. CALCIUM FOLINATE [Suspect]
     Indication: COLON CANCER
     Dosage: UNKNOWN, UNKNOWN, UNKNOWN,
     Dates: start: 20130507
  2. CALCIUM FOLINATE [Suspect]
     Indication: METASTASES TO LYMPH NODES
     Dosage: UNKNOWN, UNKNOWN, UNKNOWN,
     Dates: start: 20130507
  3. CALCIUM FOLINATE [Suspect]
     Dosage: UNKNOWN, UNKNOWN, UNKNOWN,
     Dates: start: 20130507
  4. CALCIUM FOLINATE [Suspect]
     Dosage: UNKNOWN, UNKNOWN, UNKNOWN,
     Dates: start: 20130507
  5. (OXALIPLATIN) [Suspect]
     Indication: COLON CANCER
     Dosage: UNKNOWN, UNKNOWN, UNKNOWN
     Dates: start: 20130507
  6. (OXALIPLATIN) [Suspect]
     Indication: METASTASES TO LYMPH NODES
     Dosage: UNKNOWN, UNKNOWN, UNKNOWN
     Dates: start: 20130507
  7. FLUOROURACIL [Suspect]
     Dosage: UNKNOWN, UNKNOWN, UNKNOWN
     Dates: start: 20130507

REACTIONS (3)
  - Arteriosclerosis [None]
  - Cardiomegaly [None]
  - Cardiovascular disorder [None]
